FAERS Safety Report 19609794 (Version 1)
Quarter: 2021Q3

REPORT INFORMATION
  Report Type: Spontaneous
  Country: US (occurrence: US)
  Receive Date: 20210726
  Receipt Date: 20210726
  Transmission Date: 20211014
  Serious: Yes (Other)
  Sender: FDA-Public Use
  Company Number: US-PFIZER INC-2021391611

PATIENT
  Age: 64 Year
  Sex: Female

DRUGS (3)
  1. LORBRENA [Suspect]
     Active Substance: LORLATINIB
     Indication: LUNG NEOPLASM MALIGNANT
     Dosage: 100 MG
  2. LORBRENA [Suspect]
     Active Substance: LORLATINIB
     Dosage: 50 MG
  3. LORBRENA [Suspect]
     Active Substance: LORLATINIB
     Dosage: 75 MG

REACTIONS (9)
  - Headache [Unknown]
  - Nausea [Unknown]
  - Back pain [Unknown]
  - Spinal fracture [Unknown]
  - Neck injury [Unknown]
  - Fall [Unknown]
  - Regurgitation [Unknown]
  - Neoplasm progression [Unknown]
  - Head injury [Unknown]
